FAERS Safety Report 24248015 (Version 1)
Quarter: 2024Q3

REPORT INFORMATION
  Report Type: Spontaneous
  Country: US (occurrence: US)
  Receive Date: 20240826
  Receipt Date: 20240826
  Transmission Date: 20241017
  Serious: No
  Sender: ROCHE
  Company Number: US-ROCHE-10000063095

PATIENT
  Sex: Male

DRUGS (1)
  1. VABYSMO [Suspect]
     Active Substance: FARICIMAB\FARICIMAB-SVOA
     Indication: Macular degeneration
     Route: 065
     Dates: start: 20240815

REACTIONS (4)
  - Ocular hyperaemia [Not Recovered/Not Resolved]
  - Eye haemorrhage [Recovering/Resolving]
  - Mydriasis [Unknown]
  - Foreign body sensation in eyes [Unknown]

NARRATIVE: CASE EVENT DATE: 20240815
